FAERS Safety Report 8136742-4 (Version None)
Quarter: 2012Q1

REPORT INFORMATION
  Report Type: 
  Country: None (occurrence: None)
  Receive Date: 20120214
  Receipt Date: 20120209
  Transmission Date: 20120608
  Serious: Yes (Hospitalization)
  Sender: FDA-Public Use
  Company Number: GB-PFIZER INC-2012036567

PATIENT
  Age: 51 Year
  Sex: Male

DRUGS (7)
  1. AMLODIPINE [Concomitant]
     Dosage: 5 MG, 1X/DAY
     Route: 048
  2. BISOPROLOL [Concomitant]
     Dosage: 5 MG, 1X/DAY
     Route: 048
  3. SERTRALINE HYDROCHLORIDE [Suspect]
     Dosage: 50 MG, 1X/DAY
     Route: 048
     Dates: end: 20120101
  4. QUININE SULFATE [Suspect]
     Dosage: 300 MG, 1X/DAY
     Route: 048
     Dates: end: 20120114
  5. PRAVASTATIN [Concomitant]
     Dosage: 40 MG, 1X/DAY
     Route: 048
  6. TRANDOLAPRIL [Concomitant]
     Dosage: 6 MG, 1X/DAY
     Route: 048
  7. ALLOPURINOL [Concomitant]
     Dosage: 300 MG, 1X/DAY
     Route: 048

REACTIONS (1)
  - VASCULITIS [None]
